FAERS Safety Report 14862232 (Version 1)
Quarter: 2018Q2

REPORT INFORMATION
  Report Type: Spontaneous
  Country: US (occurrence: US)
  Receive Date: 20180423
  Receipt Date: 20180423
  Transmission Date: 20180711
  Serious: Yes (Other)
  Sender: FDA-Public Use
  Company Number: None

PATIENT
  Age: 73 Year
  Sex: Male
  Weight: 94.4 kg

DRUGS (8)
  1. RITUXIMAB. [Suspect]
     Active Substance: RITUXIMAB
     Indication: MANTLE CELL LYMPHOMA
     Dosage: ?          OTHER FREQUENCY:ONCE;?
     Route: 041
     Dates: start: 20180312
  2. DEXAMETHASONE 12 MG IV [Concomitant]
     Dates: start: 20180313, end: 20180314
  3. BACTRIM 400/80 MG TABLET [Concomitant]
     Dates: start: 20180312
  4. ALLOPURINOL 300 MG TABLET [Concomitant]
     Active Substance: ALLOPURINOL
     Dates: start: 20180312
  5. ACYCLOVIR 400 MG TABLET [Concomitant]
     Active Substance: ACYCLOVIR
     Dates: start: 20180312
  6. FOSAPREPITANT 150 MG IV [Concomitant]
     Dates: start: 20180313
  7. ONDANSETRON 16 MG IV [Concomitant]
     Dates: start: 20180313, end: 20180315
  8. RITUXIMAB. [Suspect]
     Active Substance: RITUXIMAB
     Indication: MANTLE CELL LYMPHOMA
     Dosage: ?          OTHER FREQUENCY:ONCE;?
     Route: 041
     Dates: start: 20180312

REACTIONS (4)
  - Hypotension [None]
  - Chills [None]
  - Fluid overload [None]
  - Atrial fibrillation [None]

NARRATIVE: CASE EVENT DATE: 20180312
